FAERS Safety Report 9101156 (Version 3)
Quarter: 2013Q1

REPORT INFORMATION
  Report Type: Spontaneous
  Country: US (occurrence: US)
  Receive Date: 20130218
  Receipt Date: 20130226
  Transmission Date: 20140127
  Serious: Yes (Death, Life-Threatening, Hospitalization)
  Sender: FDA-Public Use
  Company Number: US-BRACCO-009168

PATIENT
  Age: 47 Year
  Sex: Female
  Weight: 94 kg

DRUGS (8)
  1. MULTIHANCE [Suspect]
     Indication: NUCLEAR MAGNETIC RESONANCE IMAGING
     Route: 042
     Dates: start: 20130208, end: 20130208
  2. OXYCODONE [Concomitant]
  3. OMEPRAZOLE [Concomitant]
  4. PROAIR [Concomitant]
  5. ADVAIR [Concomitant]
  6. SINGULAIR [Concomitant]
  7. CYMBALTA [Concomitant]
  8. LAMICTAL [Concomitant]

REACTIONS (3)
  - Brain injury [Fatal]
  - Brain oedema [Not Recovered/Not Resolved]
  - Anaphylactic shock [Fatal]
